FAERS Safety Report 6261218-9 (Version None)
Quarter: 2009Q3

REPORT INFORMATION
  Report Type: 
  Country: None (occurrence: None)
  Receive Date: 20090707
  Receipt Date: 20090629
  Transmission Date: 20100115
  Serious: Yes (Other)
  Sender: FDA-Public Use
  Company Number: 2009SP014228

PATIENT
  Age: 23 Year
  Sex: Male

DRUGS (1)
  1. CLARITIN [Suspect]
     Indication: SEASONAL ALLERGY
     Dosage: PO
     Route: 048
     Dates: end: 20090601

REACTIONS (2)
  - NIGHTMARE [None]
  - PARANOIA [None]
